FAERS Safety Report 13300018 (Version 3)
Quarter: 2017Q2

REPORT INFORMATION
  Report Type: Spontaneous
  Country: US (occurrence: US)
  Receive Date: 20170306
  Receipt Date: 20170622
  Transmission Date: 20170830
  Serious: Yes (Hospitalization)
  Sender: FDA-Public Use
  Company Number: US-VIFOR (INTERNATIONAL) INC.-VIT-2017-02388

PATIENT
  Age: 41 Year
  Sex: Female

DRUGS (35)
  1. RENVELA [Concomitant]
     Active Substance: SEVELAMER CARBONATE
  2. ESTRACE VAG [Concomitant]
  3. OXYCODONE [Concomitant]
     Active Substance: OXYCODONE
  4. DULOXETINE. [Concomitant]
     Active Substance: DULOXETINE
  5. TRAZODONE [Concomitant]
     Active Substance: TRAZODONE HYDROCHLORIDE
  6. ARIPIPRAZOLE. [Concomitant]
     Active Substance: ARIPIPRAZOLE
  7. LAMOTRIGINE. [Concomitant]
     Active Substance: LAMOTRIGINE
  8. CYMBALTA [Concomitant]
     Active Substance: DULOXETINE HYDROCHLORIDE
  9. AMLODIPINE [Concomitant]
     Active Substance: AMLODIPINE BESYLATE
  10. TRAZODONE HYDROCHLORIDE. [Concomitant]
     Active Substance: TRAZODONE HYDROCHLORIDE
  11. DULOXETINE. [Concomitant]
     Active Substance: DULOXETINE
  12. AMLODIPINE [Concomitant]
     Active Substance: AMLODIPINE BESYLATE
  13. ARIPIPRAZOLE. [Concomitant]
     Active Substance: ARIPIPRAZOLE
  14. RENA-VITE [Concomitant]
     Active Substance: ASCORBIC ACID\BIOTIN\CALCIUM PANTOTHENATE\CYANOCOBALAMIN\FOLIC ACID\NIACINAMIDE\PYRIDOXINE HYDROCHLORIDE\RIBOFLAVIN\THIAMINE MONONITRATE
  15. LISINOPRIL. [Concomitant]
     Active Substance: LISINOPRIL
  16. TRAZODONE HYDROCHLORIDE. [Concomitant]
     Active Substance: TRAZODONE HYDROCHLORIDE
  17. VAGIFEM [Concomitant]
     Active Substance: ESTRADIOL
  18. AMLODIPINE [Concomitant]
     Active Substance: AMLODIPINE BESYLATE
  19. DULOXETINE. [Concomitant]
     Active Substance: DULOXETINE
  20. SENSIPAR [Concomitant]
     Active Substance: CINACALCET HYDROCHLORIDE
     Route: 048
  21. LAMOTRIGINE. [Concomitant]
     Active Substance: LAMOTRIGINE
  22. CELEXA [Concomitant]
     Active Substance: CITALOPRAM HYDROBROMIDE
  23. CHANTIX [Concomitant]
     Active Substance: VARENICLINE TARTRATE
  24. ARIPIPRAZOLE. [Concomitant]
     Active Substance: ARIPIPRAZOLE
  25. CITALOPRAM [Concomitant]
     Active Substance: CITALOPRAM HYDROBROMIDE
  26. LISINOPRIL. [Concomitant]
     Active Substance: LISINOPRIL
  27. VELTASSA [Suspect]
     Active Substance: PATIROMER
     Indication: HYPERKALAEMIA
     Dates: start: 20170207, end: 201703
  28. PRILOSEC [Concomitant]
     Active Substance: OMEPRAZOLE MAGNESIUM
     Route: 048
  29. CLONAZEPAM. [Concomitant]
     Active Substance: CLONAZEPAM
  30. LISINOPRIL. [Concomitant]
     Active Substance: LISINOPRIL
  31. CLONAZEPAM. [Concomitant]
     Active Substance: CLONAZEPAM
  32. OMEPRAZOLE. [Concomitant]
     Active Substance: OMEPRAZOLE
  33. CLONAZEPAM. [Concomitant]
     Active Substance: CLONAZEPAM
  34. LAMOTRIGINE. [Concomitant]
     Active Substance: LAMOTRIGINE
  35. DULOXETINE. [Concomitant]
     Active Substance: DULOXETINE

REACTIONS (1)
  - Renal transplant [Unknown]

NARRATIVE: CASE EVENT DATE: 201702
